FAERS Safety Report 4441759-7 (Version None)
Quarter: 2004Q3

REPORT INFORMATION
  Report Type: 
  Country: None (occurrence: None)
  Receive Date: 20040907
  Receipt Date: 20040830
  Transmission Date: 20050211
  Serious: Yes (Hospitalization, Other)
  Sender: FDA-Public Use
  Company Number: PHBS2004IN11521

PATIENT
  Age: 14 Year
  Sex: Male

DRUGS (1)
  1. CYCLOSPORINE [Suspect]
     Indication: APLASTIC ANAEMIA
     Dosage: 200 MG/D
     Route: 065

REACTIONS (10)
  - ASTHENIA [None]
  - CLONUS [None]
  - DIFFICULTY IN WALKING [None]
  - DYSKINESIA [None]
  - GINGIVAL BLEEDING [None]
  - HAEMOGLOBIN DECREASED [None]
  - HYPERTONIA [None]
  - HYPOCHOLESTEROLAEMIA [None]
  - PALLOR [None]
  - PARAPARESIS [None]
